FAERS Safety Report 11823169 (Version 1)
Quarter: 2015Q4

REPORT INFORMATION
  Report Type: Spontaneous
  Country: US (occurrence: US)
  Receive Date: 20151210
  Receipt Date: 20151210
  Transmission Date: 20160305
  Serious: No
  Sender: FDA-Public Use
  Company Number: US-ENDO PHARMACEUTICALS INC.-ZOLP20150003

PATIENT
  Age: 45 Year
  Sex: Male

DRUGS (1)
  1. ZOLPIDEM TARTRATE TABLETS 10MG [Suspect]
     Active Substance: ZOLPIDEM TARTRATE
     Indication: INSOMNIA
     Route: 065
     Dates: start: 20150103

REACTIONS (2)
  - Drug ineffective [Not Recovered/Not Resolved]
  - Paradoxical drug reaction [Not Recovered/Not Resolved]

NARRATIVE: CASE EVENT DATE: 201501
